FAERS Safety Report 9508949 (Version 1)
Quarter: 2013Q3

REPORT INFORMATION
  Report Type: Spontaneous
  Country: US (occurrence: US)
  Receive Date: 20130909
  Receipt Date: 20130909
  Transmission Date: 20140515
  Serious: No
  Sender: FDA-Public Use
  Company Number: US-BRISTOL-MYERS SQUIBB COMPANY-19073535

PATIENT
  Sex: Female

DRUGS (2)
  1. ABILIFY TABS 10 MG [Suspect]
     Indication: DEPRESSION
  2. OPANA [Suspect]
     Indication: PAIN

REACTIONS (2)
  - Incorrect dose administered [Unknown]
  - Confusional state [Unknown]
